FAERS Safety Report 5743618-6 (Version None)
Quarter: 2008Q2

REPORT INFORMATION
  Report Type: 
  Country: None (occurrence: None)
  Receive Date: 20080519
  Receipt Date: 20080519
  Transmission Date: 20081010
  Serious: Yes (Other)
  Sender: FDA-Public Use
  Company Number: None

PATIENT
  Age: 68 Year
  Sex: Female
  Weight: 74.8435 kg

DRUGS (2)
  1. FOSAMAX [Suspect]
     Indication: OSTEOPENIA
     Dosage: TAKE 1 TABLET EVERY WEEK
  2. FOSAMAX [Suspect]
     Indication: OSTEOPOROSIS
     Dosage: TAKE 1 TABLET EVERY WEEK

REACTIONS (1)
  - HEART RATE IRREGULAR [None]
